FAERS Safety Report 4588871-X (Version None)
Quarter: 2005Q1

REPORT INFORMATION
  Report Type: 
  Country: None (occurrence: None)
  Receive Date: 20050222
  Receipt Date: 20050211
  Transmission Date: 20050727
  Serious: Yes (Other)
  Sender: FDA-Public Use
  Company Number: 394395

PATIENT
  Age: 75 Year
  Sex: Female

DRUGS (2)
  1. CARVEDILOL [Suspect]
     Dosage: 12.5MG UNKNOWN
     Route: 048
  2. OLMESARTAN MEDOXOMIL [Suspect]
     Dosage: 40MG PER DAY
     Route: 048

REACTIONS (2)
  - HEPATITIS [None]
  - TRANSAMINASES INCREASED [None]
